FAERS Safety Report 21052701 (Version 1)
Quarter: 2022Q3

REPORT INFORMATION
  Report Type: Report from Study
  Country: AU (occurrence: AU)
  Receive Date: 20220707
  Receipt Date: 20220707
  Transmission Date: 20221026
  Serious: Yes (Hospitalization)
  Sender: FDA-Public Use
  Company Number: AU-PFIZER INC-2019311398

PATIENT
  Age: 26 Year
  Sex: Male
  Weight: 91.2 kg

DRUGS (5)
  1. ABROCITINIB [Suspect]
     Active Substance: ABROCITINIB
     Indication: Dermatitis atopic
     Dosage: 200 MG, DAILY
     Route: 048
     Dates: start: 20190619, end: 20190716
  2. CEPHALEXIN [Concomitant]
     Active Substance: CEPHALEXIN
     Indication: Urinary tract infection
     Dosage: 500 MG, 2X/DAY
     Route: 048
     Dates: start: 20190703, end: 20190717
  3. FEXOFENADINE [Concomitant]
     Active Substance: FEXOFENADINE HYDROCHLORIDE
     Indication: Dermatitis atopic
     Dosage: 180 MG, AS NEEDED
     Route: 048
     Dates: start: 201803
  4. PROMETHAZINE [Concomitant]
     Active Substance: PROMETHAZINE HYDROCHLORIDE
     Indication: Dermatitis atopic
     Dosage: 25 MG, AS NEEDED
     Route: 048
     Dates: start: 201810
  5. MINOXIDIL [Concomitant]
     Active Substance: MINOXIDIL
     Indication: Alopecia
     Dosage: 1 TOP, 2X/DAY
     Route: 061
     Dates: start: 20190502

REACTIONS (1)
  - Drug-induced liver injury [Recovered/Resolved]

NARRATIVE: CASE EVENT DATE: 20190716
